FAERS Safety Report 20837189 (Version 1)
Quarter: 2022Q2

REPORT INFORMATION
  Report Type: Spontaneous
  Country: US (occurrence: US)
  Receive Date: 20220517
  Receipt Date: 20220517
  Transmission Date: 20220721
  Serious: No
  Sender: FDA-Public Use
  Company Number: US-BRISTOL-MYERS SQUIBB COMPANY-2022-023547

PATIENT
  Age: 72 Year
  Sex: Male

DRUGS (1)
  1. POMALYST [Suspect]
     Active Substance: POMALIDOMIDE
     Indication: Chronic kidney disease
     Dosage: TAKE 1 CAPSULE BY MOUTH EVERY DAY FOR 21 DAYS ON, THEN 7 DAYS OFF EVERY 28 DAY CYCLE
     Route: 048

REACTIONS (7)
  - Gastric disorder [Unknown]
  - Nausea [Unknown]
  - Back pain [Unknown]
  - Depression [Unknown]
  - Asthenia [Unknown]
  - Intentional product use issue [Unknown]
  - Product supply issue [Unknown]
